FAERS Safety Report 8402312 (Version 2)
Quarter: 2013Q2

REPORT INFORMATION
  Report Type: Spontaneous
  Country: US (occurrence: None)
  Receive Date: 20111227
  Receipt Date: 20120426
  Transmission Date: 20140414
  Serious: No
  Sender: FDA-Public Use
  Company Number: PHEH2011US010454

PATIENT
  Age: 59 Year
  Sex: Female

DRUGS (2)
  1. GILENYA [Suspect]
     Indication: MULTIPLE SCLEROSIS
     Dosage: 0.5 MG, EVERYDAY, ORAL
     Route: 048
     Dates: start: 20111010
  2. GILENYA [Suspect]
     Indication: RELAPSING-REMITTING MULTIPLE SCLEROSIS
     Dosage: 0.5 MG, EVERYDAY, ORAL
     Route: 048
     Dates: start: 20111010

REACTIONS (4)
  - PULMONARY ARTERIAL HYPERTENSION [None]
  - Cognitive disorder [None]
  - Fatigue [None]
  - Lymphocyte count decreased [None]
